FAERS Safety Report 22848608 (Version 2)
Quarter: 2024Q3

REPORT INFORMATION
  Report Type: Spontaneous
  Country: US (occurrence: US)
  Receive Date: 20230822
  Receipt Date: 20240924
  Transmission Date: 20241017
  Serious: Yes (Other)
  Sender: BAYER
  Company Number: US-BAYER-2023A114297

PATIENT
  Age: 33 Year
  Sex: Female

DRUGS (1)
  1. MIRENA [Suspect]
     Active Substance: LEVONORGESTREL
     Dosage: 20?G/DAY
     Route: 015
     Dates: start: 2010

REACTIONS (5)
  - Pelvic pain [Not Recovered/Not Resolved]
  - Device dislocation [None]
  - Uterine leiomyoma [None]
  - Decidual cast [None]
  - Device use issue [None]

NARRATIVE: CASE EVENT DATE: 20130101
